FAERS Safety Report 10488776 (Version 1)
Quarter: 2014Q4

REPORT INFORMATION
  Report Type: Spontaneous
  Country: US (occurrence: US)
  Receive Date: 20141002
  Receipt Date: 20141002
  Transmission Date: 20150528
  Serious: Yes (Other)
  Sender: FDA-Public Use
  Company Number: US-TEVA-511977USA

PATIENT
  Sex: Male

DRUGS (2)
  1. ZEBETA [Suspect]
     Active Substance: BISOPROLOL FUMARATE
     Route: 065
  2. ZEBETA [Suspect]
     Active Substance: BISOPROLOL FUMARATE
     Route: 065

REACTIONS (3)
  - Haemorrhage [Unknown]
  - Dyspnoea [Unknown]
  - Contusion [Unknown]
